FAERS Safety Report 7657225-1 (Version None)
Quarter: 2011Q3

REPORT INFORMATION
  Report Type: 
  Country: None (occurrence: None)
  Receive Date: 20110804
  Receipt Date: 20110725
  Transmission Date: 20111222
  Serious: Yes (Death, Life-Threatening, Hospitalization)
  Sender: FDA-Public Use
  Company Number: JP-GENZYME-THYM-1002648

PATIENT
  Sex: Male
  Weight: 62 kg

DRUGS (9)
  1. RED BLOOD CELLS, CONCENTRATED [Concomitant]
     Indication: RED BLOOD CELL COUNT DECREASED
  2. BACTRIM [Concomitant]
     Indication: PROPHYLAXIS
     Dosage: UNK
     Dates: start: 20101217, end: 20110109
  3. PLATELETS [Concomitant]
     Indication: PLATELET COUNT DECREASED
     Dosage: UNK
     Dates: start: 20101115, end: 20110214
  4. METHOTREXATE [Concomitant]
     Indication: PROPHYLAXIS AGAINST GRAFT VERSUS HOST DISEASE
     Dosage: UNK
     Dates: start: 20101111, end: 20101116
  5. METHYLPREDNISOLONE SODIUM SUCCINATE [Concomitant]
     Indication: PREMEDICATION
     Dosage: UNK
     Dates: start: 20101107, end: 20101117
  6. THYMOGLOBULIN [Suspect]
     Indication: BONE MARROW CONDITIONING REGIMEN
     Dosage: 160 MG, QD
     Route: 042
     Dates: start: 20101107, end: 20101108
  7. CYCLOPHOSPHAMIDE [Concomitant]
     Indication: BONE MARROW CONDITIONING REGIMEN
     Dosage: UNK
     Dates: start: 20101106, end: 20101107
  8. TACROLIMUS [Concomitant]
     Indication: PROPHYLAXIS AGAINST GRAFT VERSUS HOST DISEASE
     Dosage: UNK
     Dates: start: 20101109, end: 20110215
  9. ITRACONAZOLE [Concomitant]
     Indication: ANTIFUNGAL PROPHYLAXIS
     Dosage: UNK
     Dates: start: 20101226, end: 20110114

REACTIONS (12)
  - GASTROINTESTINAL HAEMORRHAGE [None]
  - ERYTHEMA [None]
  - CYTOMEGALOVIRUS INFECTION [None]
  - PYREXIA [None]
  - RENAL FAILURE ACUTE [None]
  - PANCREATITIS ACUTE [None]
  - JAUNDICE [None]
  - RASH [None]
  - DIARRHOEA [None]
  - ACUTE GRAFT VERSUS HOST DISEASE [None]
  - NEUTROPHIL COUNT DECREASED [None]
  - MULTI-ORGAN FAILURE [None]
